FAERS Safety Report 10314120 (Version 5)
Quarter: 2015Q2

REPORT INFORMATION
  Report Type: Spontaneous
  Country: US (occurrence: US)
  Receive Date: 20140718
  Receipt Date: 20150421
  Transmission Date: 20150821
  Serious: Yes (Hospitalization, Disabling, Other)
  Sender: FDA-Public Use
  Company Number: US-009507513-1407USA007739

PATIENT
  Sex: Male
  Weight: 103.4 kg

DRUGS (4)
  1. PROPECIA [Suspect]
     Active Substance: FINASTERIDE
     Indication: ANDROGENETIC ALOPECIA
     Dosage: 1 MG, QD
     Route: 048
     Dates: start: 2006, end: 20091104
  2. FINASTERIDE. [Suspect]
     Active Substance: FINASTERIDE
     Indication: ANDROGENETIC ALOPECIA
     Dosage: 1.25 MG, QD
     Route: 048
     Dates: start: 200911, end: 2011
  3. FINASTERIDE. [Suspect]
     Active Substance: FINASTERIDE
     Indication: ANDROGENETIC ALOPECIA
     Dosage: 1.25 MG, QD
     Route: 048
     Dates: start: 20101027, end: 2011
  4. NEXIUM [Concomitant]
     Active Substance: ESOMEPRAZOLE MAGNESIUM
     Indication: GASTROOESOPHAGEAL REFLUX DISEASE
     Dosage: UNK
     Dates: start: 1993, end: 2013

REACTIONS (55)
  - Hormone level abnormal [Unknown]
  - Androgen deficiency [Unknown]
  - Genital herpes [Not Recovered/Not Resolved]
  - Restless legs syndrome [Unknown]
  - Bronchospasm [Unknown]
  - Migraine [Unknown]
  - Reproductive tract disorder [Unknown]
  - Nephrolithiasis [Unknown]
  - Vision blurred [Unknown]
  - Hyperlipidaemia [Unknown]
  - Dyspnoea [Unknown]
  - Fatigue [Recovering/Resolving]
  - Oesophagogastric fundoplasty [Unknown]
  - Semen volume decreased [Unknown]
  - Suicidal ideation [Unknown]
  - Genital hypoaesthesia [Unknown]
  - Amnesia [Not Recovered/Not Resolved]
  - Wrong technique in drug usage process [Unknown]
  - Hepatic enzyme abnormal [Recovered/Resolved]
  - Hernia hiatus repair [Unknown]
  - Iron deficiency anaemia [Unknown]
  - Supraventricular extrasystoles [Unknown]
  - Testicular pain [Unknown]
  - Penis injury [Not Recovered/Not Resolved]
  - Erectile dysfunction [Not Recovered/Not Resolved]
  - Muscle spasms [Unknown]
  - Anxiety [Unknown]
  - Keratomileusis [Unknown]
  - Irritability [Unknown]
  - Hiatus hernia [Unknown]
  - Drug ineffective [Unknown]
  - Endocrine disorder [Not Recovered/Not Resolved]
  - Painful ejaculation [Unknown]
  - Barrett^s oesophagus [Unknown]
  - Drug administration error [Unknown]
  - Polycythaemia [Unknown]
  - Ventricular extrasystoles [Unknown]
  - Ejaculation disorder [Unknown]
  - Loss of libido [Unknown]
  - Gynaecomastia [Not Recovered/Not Resolved]
  - Brain injury [Not Recovered/Not Resolved]
  - Gastrooesophageal reflux disease [Unknown]
  - Sleep apnoea syndrome [Unknown]
  - Breast enlargement [Unknown]
  - Nervous system disorder [Not Recovered/Not Resolved]
  - Glucose tolerance impaired [Unknown]
  - Drug ineffective [Unknown]
  - Drug ineffective [Unknown]
  - Complex partial seizures [Unknown]
  - Sexual dysfunction [Not Recovered/Not Resolved]
  - Muscle spasms [Unknown]
  - Sinusitis [Unknown]
  - Bronchitis [Unknown]
  - Vitamin D deficiency [Unknown]
  - Depression [Unknown]

NARRATIVE: CASE EVENT DATE: 200611
